FAERS Safety Report 9912541 (Version 1)
Quarter: 2014Q1

REPORT INFORMATION
  Report Type: Spontaneous
  Country: IN (occurrence: None)
  Receive Date: 20140212
  Receipt Date: 20140212
  Transmission Date: 20141002
  Serious: Yes (Hospitalization)
  Sender: FDA-Public Use
  Company Number: NSR_01515_2014

PATIENT
  Age: 45 Year
  Sex: 0

DRUGS (1)
  1. ALLOPURINOL [Suspect]
     Indication: HYPERURICAEMIA

REACTIONS (3)
  - Dermatitis exfoliative [None]
  - Aspartate aminotransferase increased [None]
  - Alanine aminotransferase increased [None]
